FAERS Safety Report 10774439 (Version 1)
Quarter: 2015Q1

REPORT INFORMATION
  Report Type: Spontaneous
  Country: US (occurrence: US)
  Receive Date: 20150209
  Receipt Date: 20150209
  Transmission Date: 20150721
  Serious: Yes (Hospitalization, Other)
  Sender: FDA-Public Use
  Company Number: US-AMGEN-USASP2015010702

PATIENT
  Age: 54 Year
  Sex: Female

DRUGS (1)
  1. ENBREL [Suspect]
     Active Substance: ETANERCEPT
     Indication: JUVENILE IDIOPATHIC ARTHRITIS
     Dosage: 50 MG, QWK
     Route: 065
     Dates: start: 20060430

REACTIONS (6)
  - Arthropathy [Not Recovered/Not Resolved]
  - Hip arthroplasty [Recovered/Resolved]
  - Arthralgia [Not Recovered/Not Resolved]
  - Weight increased [Not Recovered/Not Resolved]
  - Joint range of motion decreased [Not Recovered/Not Resolved]
  - Fall [Not Recovered/Not Resolved]

NARRATIVE: CASE EVENT DATE: 201410
